FAERS Safety Report 6058138-1 (Version None)
Quarter: 2009Q1

REPORT INFORMATION
  Report Type: 
  Country: None (occurrence: None)
  Receive Date: 20090127
  Receipt Date: 20090115
  Transmission Date: 20090719
  Serious: Yes (Hospitalization, Other)
  Sender: FDA-Public Use
  Company Number: GXKR2009DE00720

PATIENT
  Sex: Male

DRUGS (4)
  1. AMLODIPINE [Suspect]
  2. HYDROCHLOROTHIAZIDE [Suspect]
  3. RAMIPRIL [Suspect]
  4. METOPROLOL SUCCINATE [Suspect]

REACTIONS (1)
  - COOMBS POSITIVE HAEMOLYTIC ANAEMIA [None]
